FAERS Safety Report 11620174 (Version 3)
Quarter: 2016Q1

REPORT INFORMATION
  Report Type: Spontaneous
  Country: US (occurrence: US)
  Receive Date: 20151012
  Receipt Date: 20160108
  Transmission Date: 20160525
  Serious: No
  Sender: FDA-Public Use
  Company Number: US-SA-2015SA135296

PATIENT
  Age: 24 Year
  Sex: Male
  Weight: 86.18 kg

DRUGS (3)
  1. JANUMET [Concomitant]
     Active Substance: METFORMIN HYDROCHLORIDE\SITAGLIPTIN PHOSPHATE
     Indication: DIABETES MELLITUS
     Dates: start: 20150720, end: 20150819
  2. LANTUS [Concomitant]
     Active Substance: INSULIN GLARGINE
     Indication: DIABETES MELLITUS
     Dosage: DOSE:46 UNIT(S)
     Dates: start: 20150720
  3. AFREZZA [Suspect]
     Active Substance: INSULIN HUMAN
     Indication: DIABETES MELLITUS
     Dosage: FORM: INHALER
     Route: 065
     Dates: start: 20150819, end: 20150902

REACTIONS (1)
  - Chest discomfort [Recovered/Resolved]

NARRATIVE: CASE EVENT DATE: 20150902
